FAERS Safety Report 6676718-7 (Version None)
Quarter: 2010Q1

REPORT INFORMATION
  Report Type: 
  Country: None (occurrence: None)
  Receive Date: 20100331
  Receipt Date: 20090319
  Transmission Date: 20100710
  Serious: Yes (Other)
  Sender: FDA-Public Use
  Company Number: 2008095139

PATIENT
  Age: 73 Year
  Sex: Male

DRUGS (11)
  1. SUTENT [Suspect]
     Dosage: 50 MG, 1X/DAY
     Dates: start: 20081001
  2. SUTENT [Suspect]
     Dosage: 50 MG, 1X/DAY
     Dates: start: 20081106
  3. DIOVANE (VALSARTAN) [Concomitant]
  4. HYDROCHLOROTHIAZIDE [Concomitant]
  5. TOPROL-XL [Concomitant]
  6. CATAFLAM [Concomitant]
  7. LIPITOR [Concomitant]
  8. ASPIRIN [Concomitant]
  9. CENTRUM SILVER (ASCORBIC ACID, CALCIUM, MINERALS NOS, RETINOL, TOCOPHE [Concomitant]
  10. VITAMIN D [Concomitant]
  11. CLARITIN [Concomitant]

REACTIONS (3)
  - BLOOD PRESSURE INCREASED [None]
  - DIARRHOEA [None]
  - FLUSHING [None]
